FAERS Safety Report 15798167 (Version 1)
Quarter: 2019Q1

REPORT INFORMATION
  Report Type: Spontaneous
  Country: IN (occurrence: IN)
  Receive Date: 20190108
  Receipt Date: 20190108
  Transmission Date: 20190417
  Serious: Yes (Other)
  Sender: FDA-Public Use
  Company Number: IN-009507513-1901IND000501

PATIENT
  Age: 20 Year
  Sex: Female
  Weight: 56.8 kg

DRUGS (12)
  1. IMIPENEM AND CILASTATIN [Suspect]
     Active Substance: CILASTATIN SODIUM\IMIPENEM
     Indication: PULMONARY TUBERCULOSIS
     Dosage: 1 GRAM, BID
     Route: 042
     Dates: start: 20180724, end: 20181130
  2. CLOFAZIMINE [Suspect]
     Active Substance: CLOFAZIMINE
     Indication: PULMONARY TUBERCULOSIS
     Dosage: 100 MILLIGRAM, QD
     Route: 065
     Dates: start: 20180724, end: 20181130
  3. FERROUS SULFATE (+) FOLIC ACID [Concomitant]
     Indication: IRON DEFICIENCY ANAEMIA
     Dosage: UNK
     Dates: start: 20180724
  4. AMOXICILLIN (+) CLAVULANATE POTASSIUM [Suspect]
     Active Substance: AMOXICILLIN\CLAVULANATE POTASSIUM
     Indication: PULMONARY TUBERCULOSIS
     Dosage: 625 MILLIGRAM, BID
     Route: 065
     Dates: start: 20180724, end: 20181130
  5. LINEZOLID. [Suspect]
     Active Substance: LINEZOLID
     Indication: PULMONARY TUBERCULOSIS
     Dosage: 300 MILLIGRAM, QD
     Route: 065
     Dates: start: 20180724, end: 20181130
  6. ONDANSETRON [Concomitant]
     Active Substance: ONDANSETRON
     Indication: ANTIEMETIC SUPPORTIVE CARE
     Dosage: UNK
     Dates: start: 20180724
  7. DELAMANID [Suspect]
     Active Substance: DELAMANID
     Indication: PULMONARY TUBERCULOSIS
     Dosage: 100 GRAM, BID
     Route: 048
     Dates: start: 20180724, end: 20181130
  8. PYRIDOXINE [Concomitant]
     Active Substance: PYRIDOXINE
     Indication: PROPHYLAXIS
     Dosage: UNK
     Dates: start: 20180724
  9. PREGABALIN. [Concomitant]
     Active Substance: PREGABALIN
     Indication: NEUROPATHY PERIPHERAL
     Dosage: UNK
     Dates: start: 20180724
  10. LEVOTHYROXINE SODIUM. [Concomitant]
     Active Substance: LEVOTHYROXINE SODIUM
     Indication: HYPOTHYROIDISM
     Dosage: UNK
     Dates: start: 20180601
  11. BEDAQUILINE [Suspect]
     Active Substance: BEDAQUILINE
     Indication: PULMONARY TUBERCULOSIS
     Dosage: 200 MILLIGRAM, TIW
     Route: 048
     Dates: start: 20180724, end: 20181130
  12. OMEPRAZOLE. [Concomitant]
     Active Substance: OMEPRAZOLE
     Indication: ANTACID THERAPY
     Dosage: UNK
     Dates: start: 20180724

REACTIONS (7)
  - Abdominal pain [Recovered/Resolved]
  - Vomiting [Recovered/Resolved]
  - Insomnia [Recovered/Resolved]
  - Mixed anxiety and depressive disorder [Unknown]
  - Decreased appetite [Recovered/Resolved]
  - Panic attack [Recovered/Resolved]
  - Deja vu [Unknown]

NARRATIVE: CASE EVENT DATE: 20180724
